FAERS Safety Report 17585159 (Version 1)
Quarter: 2020Q1

REPORT INFORMATION
  Report Type: Spontaneous
  Country: US (occurrence: US)
  Receive Date: 20200326
  Receipt Date: 20200326
  Transmission Date: 20200409
  Serious: Yes (Other)
  Sender: FDA-Public Use
  Company Number: None

PATIENT
  Age: 50 Year
  Sex: Female
  Weight: 63 kg

DRUGS (5)
  1. VITAMIN C [Concomitant]
     Active Substance: ASCORBIC ACID
  2. ZICAM COLD REMEDY [Suspect]
     Active Substance: HOMEOPATHICS\ZINC ACETATE\ZINC GLUCONATE
     Indication: NASOPHARYNGITIS
     Route: 061
     Dates: start: 20200221, end: 20200226
  3. ALOE VERA CAPSULES [Concomitant]
  4. JUST VITAMINS [Concomitant]
  5. VITAMIN B12 [Concomitant]
     Active Substance: CYANOCOBALAMIN

REACTIONS (7)
  - Rhinorrhoea [None]
  - Epistaxis [None]
  - Nasal discomfort [None]
  - Expired product administered [None]
  - Secretion discharge [None]
  - Nasal dryness [None]
  - Burning sensation [None]

NARRATIVE: CASE EVENT DATE: 20200221
